FAERS Safety Report 13905497 (Version 1)
Quarter: 2017Q3

REPORT INFORMATION
  Report Type: Spontaneous
  Country: US (occurrence: None)
  Receive Date: 20170821
  Receipt Date: 20170821
  Transmission Date: 20171127
  Serious: No
  Sender: FDA-Public Use
  Company Number: None

PATIENT
  Age: 79 Year
  Sex: Male

DRUGS (1)
  1. BEXAROTENE CAP 75MG [Suspect]
     Active Substance: BEXAROTENE

REACTIONS (3)
  - Hypothyroidism [None]
  - Blood triglycerides increased [None]
  - Therapy cessation [None]

NARRATIVE: CASE EVENT DATE: 20170821
